FAERS Safety Report 8768451 (Version 2)
Quarter: 2012Q4

REPORT INFORMATION
  Report Type: Report from Study
  Country: US (occurrence: US)
  Receive Date: 20120905
  Receipt Date: 20120905
  Transmission Date: 20130627
  Serious: Yes (Other)
  Sender: FDA-Public Use
  Company Number: US-ROCHE-1052466

PATIENT
  Age: 66 Year
  Sex: Female
  Weight: 46.8 kg

DRUGS (14)
  1. MABTHERA [Suspect]
     Indication: CHRONIC LYMPHOCYTIC LEUKAEMIA
     Dosage: cyclical
     Route: 042
     Dates: start: 20110301, end: 20110419
  2. UNSPECIFIED INGREDIENT [Suspect]
     Indication: CHRONIC LYMPHOCYTIC LEUKAEMIA
     Route: 048
     Dates: start: 20110301, end: 20110902
  3. PRAVASTATIN [Concomitant]
     Route: 065
     Dates: start: 201101, end: 20111004
  4. ZOMETA [Concomitant]
     Route: 065
     Dates: start: 201101
  5. ASCORBIC ACID [Concomitant]
  6. CALCIUM [Concomitant]
     Route: 065
     Dates: start: 201102
  7. FISH OIL [Concomitant]
     Route: 065
     Dates: start: 201102
  8. BENADRYL [Concomitant]
  9. TYLENOL [Concomitant]
     Route: 065
     Dates: start: 20110301
  10. ZOFRAN [Concomitant]
  11. ALLOPURINOL [Concomitant]
     Route: 065
     Dates: start: 20110303, end: 20110510
  12. SEPTRA DS [Concomitant]
     Route: 065
     Dates: start: 20110305, end: 20110412
  13. MEPRON [Concomitant]
     Route: 065
     Dates: start: 20110430, end: 20110510
  14. PREDNISONE [Concomitant]
     Route: 065
     Dates: start: 20110510, end: 20110623

REACTIONS (1)
  - Aplasia pure red cell [Recovered/Resolved]
